FAERS Safety Report 9395479 (Version 1)
Quarter: 2013Q3

REPORT INFORMATION
  Report Type: Spontaneous
  Country: DE (occurrence: DE)
  Receive Date: 20130711
  Receipt Date: 20130711
  Transmission Date: 20140515
  Serious: Yes (Hospitalization)
  Sender: FDA-Public Use
  Company Number: DE-EISAI INC-E2007-01233-SPO-DE

PATIENT
  Sex: Male

DRUGS (3)
  1. FYCOMPA (PERAMPANEL) [Suspect]
     Indication: EPILEPSY
     Route: 048
     Dates: start: 201304
  2. VALPROATE [Concomitant]
     Indication: EPILEPSY
     Dosage: UNKNOWN
     Route: 048
  3. LEVETIRACETAM [Concomitant]
     Indication: EPILEPSY
     Dosage: UNKNOWN
     Route: 048

REACTIONS (2)
  - Charles Bonnet syndrome [Not Recovered/Not Resolved]
  - Confusional state [Unknown]
